FAERS Safety Report 23163012 (Version 3)
Quarter: 2023Q4

REPORT INFORMATION
  Report Type: Report from Study
  Country: US (occurrence: US)
  Receive Date: 20231109
  Receipt Date: 20231204
  Transmission Date: 20240110
  Serious: No
  Sender: FDA-Public Use
  Company Number: US-AMGEN-USASL2023197581

PATIENT
  Age: 35 Year
  Sex: Female

DRUGS (1)
  1. NEULASTA [Suspect]
     Active Substance: PEGFILGRASTIM
     Indication: Prophylaxis
     Dosage: UNK UNK, Q3WK
     Route: 065

REACTIONS (3)
  - Device adhesion issue [Unknown]
  - Drug dose omission by device [Unknown]
  - Device placement issue [Unknown]

NARRATIVE: CASE EVENT DATE: 20231102
